FAERS Safety Report 21192231 (Version 6)
Quarter: 2022Q4

REPORT INFORMATION
  Report Type: Report from Study
  Country: NZ (occurrence: NZ)
  Receive Date: 20220809
  Receipt Date: 20221215
  Transmission Date: 20230112
  Serious: Yes (Hospitalization, Other)
  Sender: FDA-Public Use
  Company Number: NZ-BRISTOL-MYERS SQUIBB COMPANY-2022-083940

PATIENT
  Age: 54 Year
  Sex: Male
  Weight: 119.4 kg

DRUGS (21)
  1. OZANIMOD [Suspect]
     Active Substance: OZANIMOD
     Indication: Relapsing multiple sclerosis
     Dosage: 1 DF = 1 CAPSULE?MOST RECENT DOSE WAS ON 25-AUG-2022
     Route: 048
     Dates: start: 20161014
  2. OZANIMOD [Suspect]
     Active Substance: OZANIMOD
  3. SYMBICORT [Concomitant]
     Active Substance: BUDESONIDE\FORMOTEROL FUMARATE DIHYDRATE
     Indication: Asthma
     Dosage: 1 DF= 160/4.5 (MICROGRAM)
     Route: 055
     Dates: start: 20170620
  4. DALFAMPRIDINE [Concomitant]
     Active Substance: DALFAMPRIDINE
     Indication: Mobility decreased
     Route: 048
     Dates: start: 20190301
  5. BACLOFEN [Concomitant]
     Active Substance: BACLOFEN
     Indication: Muscle spasms
     Route: 048
     Dates: start: 20141028
  6. BUDESONIDE+EFORMOTEROL [Concomitant]
     Indication: Asthma
     Dosage: 1 DF= 200/6 MICROGRAM??BUDESONIDE+EFORMOTEROL200/6 TURBUHALER
     Route: 055
     Dates: start: 20200129
  7. CETIRIZINE [Concomitant]
     Active Substance: CETIRIZINE HYDROCHLORIDE
     Indication: Seasonal allergy
     Route: 048
     Dates: start: 20200129
  8. CHOLECALCIFEROL [Concomitant]
     Active Substance: CHOLECALCIFEROL
     Indication: Supplementation therapy
     Route: 048
     Dates: start: 20140404
  9. EMTRICITABINE 200MG+TENOFOV IR 245MG [Concomitant]
     Indication: Prophylaxis against HIV infection
     Dosage: 1 DF= 200+ 245 MILLIGRAM
     Route: 048
     Dates: start: 20190809
  10. LOPERAMIDE [Concomitant]
     Active Substance: LOPERAMIDE
     Indication: Diarrhoea
     Dosage: FREQUENCY: EVERY OTHER DAY
     Route: 048
     Dates: start: 20190301
  11. ZOPLICLONE [Concomitant]
     Indication: Insomnia
     Dosage: AS NEEDED.
     Route: 048
     Dates: start: 20200129
  12. DALFAMPRIDINE [Concomitant]
     Active Substance: DALFAMPRIDINE
     Indication: Gait disturbance
     Route: 048
     Dates: start: 20200619
  13. SODIUM FUSIDATE 2% LIQUID PARAFFIN [Concomitant]
     Indication: Folliculitis
     Dosage: 1 (COAT DOSING UNIT)
     Route: 061
     Dates: start: 20210618
  14. SORBOLENE CREAM [Concomitant]
     Indication: Prophylaxis
     Dosage: 1 (OTHER)
     Route: 061
     Dates: start: 20220804
  15. 0.9% SALINE [Concomitant]
     Indication: Fluid replacement
     Route: 042
     Dates: start: 20220801, end: 20220802
  16. Redseal men multivitamin [Concomitant]
     Indication: Supplementation therapy
     Dosage: 1 (TABLET DOSING UNIT)
     Route: 048
     Dates: start: 20160910
  17. MICONAZOLE CREAM [Concomitant]
     Indication: Tinea pedis
     Dosage: 1 DF=1 (OTHER)
     Route: 061
     Dates: start: 20220802
  18. OMEPRAZOLE [Concomitant]
     Active Substance: OMEPRAZOLE
     Indication: Dyspepsia
     Route: 048
     Dates: start: 20220812, end: 20221111
  19. ACETAMINOPHEN [Concomitant]
     Active Substance: ACETAMINOPHEN
     Indication: Cellulitis
     Route: 048
     Dates: start: 20220801, end: 20220803
  20. FLUCLOXACILLIN [Concomitant]
     Active Substance: FLUCLOXACILLIN
     Indication: Cellulitis
     Route: 042
     Dates: start: 20220801, end: 20220803
  21. FLUCLOXACILLIN [Concomitant]
     Active Substance: FLUCLOXACILLIN
     Route: 048
     Dates: start: 20220804, end: 20220814

REACTIONS (1)
  - Cellulitis [Recovered/Resolved]

NARRATIVE: CASE EVENT DATE: 20220818
